FAERS Safety Report 7563670-5 (Version None)
Quarter: 2011Q2

REPORT INFORMATION
  Report Type: 
  Country: None (occurrence: None)
  Receive Date: 20110622
  Receipt Date: 20110607
  Transmission Date: 20111010
  Serious: Yes (Hospitalization)
  Sender: FDA-Public Use
  Company Number: US-ROCHE-783242

PATIENT
  Age: 69 Year
  Sex: Female

DRUGS (3)
  1. BEVACIZUMAB [Suspect]
     Route: 042
     Dates: start: 20100522
  2. CARBOPLATIN [Suspect]
     Dosage: AUC 6
     Route: 042
     Dates: start: 20100429, end: 20100801
  3. PACLITAXEL [Suspect]
     Dosage: DAY 1,8,15
     Route: 042
     Dates: start: 20100429, end: 20100801

REACTIONS (10)
  - DIZZINESS [None]
  - SMALL INTESTINAL PERFORATION [None]
  - PELVIC INFECTION [None]
  - LETHARGY [None]
  - ABDOMINAL PAIN [None]
  - WHITE BLOOD CELL COUNT DECREASED [None]
  - HYPONATRAEMIA [None]
  - HYPOPHOSPHATAEMIA [None]
  - LYMPHOPENIA [None]
  - HYPOALBUMINAEMIA [None]
